FAERS Safety Report 23331181 (Version 3)
Quarter: 2024Q1

REPORT INFORMATION
  Report Type: Spontaneous
  Country: US (occurrence: US)
  Receive Date: 20231222
  Receipt Date: 20240326
  Transmission Date: 20240410
  Serious: Yes (Hospitalization, Other)
  Sender: FDA-Public Use
  Company Number: US-GSK-US2023174000

PATIENT

DRUGS (2)
  1. NUCALA [Suspect]
     Active Substance: MEPOLIZUMAB
     Indication: Product used for unknown indication
     Dosage: UNK
     Dates: end: 202312
  2. XANAX [Concomitant]
     Active Substance: ALPRAZOLAM
     Indication: Product used for unknown indication
     Dosage: UNK

REACTIONS (13)
  - Product dose omission issue [Unknown]
  - Accidental overdose [Recovered/Resolved]
  - Encephalopathy [Recovered/Resolved]
  - Mental impairment [Unknown]
  - Depression [Not Recovered/Not Resolved]
  - Loss of consciousness [Unknown]
  - Dyspnoea [Not Recovered/Not Resolved]
  - Urinary tract infection [Recovered/Resolved]
  - Respiratory disorder [Not Recovered/Not Resolved]
  - Asthenia [Unknown]
  - Fracture [Unknown]
  - Cough [Unknown]
  - Life support [Recovered/Resolved]

NARRATIVE: CASE EVENT DATE: 20170101
